FAERS Safety Report 6258153-9 (Version None)
Quarter: 2009Q3

REPORT INFORMATION
  Report Type: 
  Country: None (occurrence: None)
  Receive Date: 20090707
  Receipt Date: 20090706
  Transmission Date: 20100115
  Serious: Yes (Other)
  Sender: FDA-Public Use
  Company Number: ES-PFIZER INC-2009224441

PATIENT
  Age: 74 Year

DRUGS (8)
  1. EPLERENONE [Suspect]
     Indication: HYPERTENSION
     Dosage: 25 MG, 1X/DAY
     Route: 048
     Dates: start: 20090324, end: 20090415
  2. OMEPRAZOLE [Concomitant]
  3. BOI K [Concomitant]
  4. COAPROVEL [Concomitant]
     Indication: HYPERTENSION
     Dosage: 150/12.5 MG, UNK
  5. NITROGLYCERIN [Concomitant]
     Indication: MYOCARDIAL ISCHAEMIA
     Dosage: 10 MG/24H, UNK
     Route: 062
  6. METFORMIN HCL [Concomitant]
     Indication: DIABETES MELLITUS
     Dosage: 850 MG, UNK
  7. SEGURIL [Concomitant]
     Dosage: 40 MG, UNK
  8. ZARATOR ^PFIZER^ [Concomitant]
     Dosage: 10 MG, UNK

REACTIONS (2)
  - CARDIAC FAILURE CONGESTIVE [None]
  - OEDEMA PERIPHERAL [None]
